FAERS Safety Report 8422332-2 (Version None)
Quarter: 2012Q2

REPORT INFORMATION
  Report Type: 
  Country: None (occurrence: None)
  Receive Date: 20120608
  Receipt Date: 20120605
  Transmission Date: 20120825
  Serious: Yes (Hospitalization, Other)
  Sender: FDA-Public Use
  Company Number: US-AMGEN-USASP2012035140

PATIENT
  Age: 59 Year
  Sex: Male

DRUGS (1)
  1. ENBREL [Suspect]
     Indication: RHEUMATOID ARTHRITIS
     Dosage: 50 MG, QWK
     Dates: start: 20100225

REACTIONS (8)
  - FEMUR FRACTURE [None]
  - MENISCUS LESION [None]
  - RHEUMATOID ARTHRITIS [None]
  - JOINT DESTRUCTION [None]
  - LIGAMENT RUPTURE [None]
  - KNEE ARTHROPLASTY [None]
  - SYNOVIAL CYST [None]
  - GAIT DISTURBANCE [None]
